FAERS Safety Report 6130631-2 (Version None)
Quarter: 2009Q1

REPORT INFORMATION
  Report Type: 
  Country: None (occurrence: None)
  Receive Date: 20090325
  Receipt Date: 20090316
  Transmission Date: 20090719
  Serious: Yes (Other)
  Sender: FDA-Public Use
  Company Number: NL-TEVA-188054ISR

PATIENT

DRUGS (11)
  1. FENTANYL-25 [Suspect]
  2. LINEZOLID [Interacting]
  3. CIPROFLOXACIN [Concomitant]
  4. DICLOFENAC [Concomitant]
  5. DIGOXIN [Concomitant]
  6. DOMPERIDONE [Concomitant]
  7. MIDAZOLAM HCL [Concomitant]
  8. MILRINONE [Concomitant]
  9. MORPHINE [Concomitant]
  10. OMEPRAZOLE [Concomitant]
  11. RIFAMPICIN [Concomitant]

REACTIONS (3)
  - DRUG INTERACTION [None]
  - HERPES VIRUS INFECTION [None]
  - SEROTONIN SYNDROME [None]
